FAERS Safety Report 20797546 (Version 1)
Quarter: 2022Q2

REPORT INFORMATION
  Report Type: Spontaneous
  Country: US (occurrence: None)
  Receive Date: 20220505
  Receipt Date: 20220505
  Transmission Date: 20220721
  Serious: Yes (Hospitalization)
  Sender: FDA-Public Use
  Company Number: None

PATIENT
  Age: 72 Year
  Sex: Female
  Weight: 60.78 kg

DRUGS (26)
  1. CAPECITABINE [Suspect]
     Active Substance: CAPECITABINE
     Indication: Breast cancer female
     Dosage: OTHER QUANTITY : 1500-1000 MG;?FREQUENCY : TWICE A DAY;?
     Route: 048
     Dates: start: 201911
  2. AMBIEN [Concomitant]
     Active Substance: ZOLPIDEM TARTRATE
  3. BIOTIN [Concomitant]
     Active Substance: BIOTIN
  4. MINERALS\VITAMINS [Concomitant]
     Active Substance: MINERALS\VITAMINS
  5. COZAAR [Concomitant]
     Active Substance: LOSARTAN POTASSIUM
  6. EXEMESTANE [Concomitant]
     Active Substance: EXEMESTANE
  7. GABAPENTIN [Concomitant]
     Active Substance: GABAPENTIN
  8. Hair Skin Nails [Concomitant]
  9. IPRATROPIUM [Concomitant]
     Active Substance: IPRATROPIUM
  10. Bromide [Concomitant]
  11. LEVAQUIN [Concomitant]
     Active Substance: LEVOFLOXACIN
  12. LOMOTIL [Concomitant]
     Active Substance: ATROPINE SULFATE\DIPHENOXYLATE HYDROCHLORIDE
  13. UNSPECIFIED INGREDIENT [Concomitant]
     Active Substance: UNSPECIFIED INGREDIENT
  14. NYSTATIN [Concomitant]
     Active Substance: NYSTATIN
  15. PEPCID [Concomitant]
     Active Substance: FAMOTIDINE
  16. PERIDEX [Concomitant]
     Active Substance: CHLORHEXIDINE GLUCONATE
  17. ROSUVASTATIN [Concomitant]
     Active Substance: ROSUVASTATIN
  18. CALCIUM [Concomitant]
     Active Substance: CALCIUM
  19. SENNA S [Concomitant]
     Active Substance: DOCUSATE SODIUM\SENNA LEAF
  20. SERTRALINE HYDROCHLORIDE [Concomitant]
     Active Substance: SERTRALINE HYDROCHLORIDE
  21. TRAMADOL HCL [Concomitant]
     Active Substance: TRAMADOL HYDROCHLORIDE
  22. VITAMIN B12 [Concomitant]
     Active Substance: CYANOCOBALAMIN
  23. CHOLECALCIFEROL [Concomitant]
     Active Substance: CHOLECALCIFEROL
  24. VITAMIN D3 [Concomitant]
     Active Substance: CHOLECALCIFEROL
  25. XANAX [Concomitant]
     Active Substance: ALPRAZOLAM
  26. ZOLOFT [Concomitant]
     Active Substance: SERTRALINE HYDROCHLORIDE

REACTIONS (1)
  - Gastric haemorrhage [None]
